FAERS Safety Report 19149768 (Version 2)
Quarter: 2021Q2

REPORT INFORMATION
  Report Type: Other
  Country: IT (occurrence: IT)
  Receive Date: 20210416
  Receipt Date: 20210421
  Transmission Date: 20210717
  Serious: Yes (Other)
  Sender: FDA-Public Use
  Company Number: IT-CELLTRION INC.-2021IT004983

PATIENT

DRUGS (6)
  1. LEVOTHYROXINE. [Concomitant]
     Active Substance: LEVOTHYROXINE
     Dosage: 50 UG SATURDAY AND SUNDAY
  2. TRASTUZUMAB (UNKNOWN) [Suspect]
     Active Substance: TRASTUZUMAB
     Indication: BREAST CANCER
     Dosage: ON 22/SEP/2020, SHE RECEIVED LAST DOSE OF TRAZTUZUMAB PRIOR TO ONSET OF ADVERSE EVENT.
     Route: 042
     Dates: start: 20190930
  3. LEVOTHYROXINE. [Concomitant]
     Active Substance: LEVOTHYROXINE
     Dosage: 100 UG, 1 DAY
  4. ATEZOLIZUMAB. [Suspect]
     Active Substance: ATEZOLIZUMAB
     Indication: BREAST CANCER
     Dosage: ON 22/SEP/2020, SHE RECEIVED LAST DOSE OF BLINDED ATEZOLIZUMAB PRIOR TO ONSET OF ADVERSE EVENT.
     Route: 042
     Dates: start: 20190930, end: 20200922
  5. LEVOTHYROXINE. [Concomitant]
     Active Substance: LEVOTHYROXINE
     Dosage: 75 UG FROM MONDAY TO FRIDAY
  6. PERTUZUMAB. [Suspect]
     Active Substance: PERTUZUMAB
     Indication: BREAST CANCER
     Dosage: ON 22/SEP/2020, SHE RECEIVED LAST DOSE OF PERTUZUMZAB PRIOR TO ONSET OF ADVERSE EVENT.
     Route: 042
     Dates: start: 20190930

REACTIONS (2)
  - Hyperthyroidism [Not Recovered/Not Resolved]
  - Off label use [Unknown]

NARRATIVE: CASE EVENT DATE: 20201010
